FAERS Safety Report 16469665 (Version 1)
Quarter: 2019Q3

REPORT INFORMATION
  Report Type: Spontaneous
  Country: US (occurrence: US)
  Receive Date: 20190623
  Receipt Date: 20190623
  Transmission Date: 20191004
  Serious: No
  Sender: FDA-Public Use
  Company Number: None

PATIENT
  Age: 41 Year
  Sex: Female
  Weight: 76.5 kg

DRUGS (8)
  1. IBU [Concomitant]
     Active Substance: IBUPROFEN
  2. FLEXARIL [Concomitant]
  3. MIGRANOL [Concomitant]
  4. PHENERGRAN [Concomitant]
  5. TORADOL [Concomitant]
     Active Substance: KETOROLAC TROMETHAMINE
  6. AIMOVIG [Suspect]
     Active Substance: ERENUMAB-AOOE
     Indication: MIGRAINE
     Dates: start: 20180601, end: 20181231
  7. ZONEGRAN [Concomitant]
     Active Substance: ZONISAMIDE
  8. ZOFRAN [Concomitant]
     Active Substance: ONDANSETRON HYDROCHLORIDE

REACTIONS (7)
  - Depressed mood [None]
  - Dysarthria [None]
  - Weight increased [None]
  - Alopecia [None]
  - Poverty of speech [None]
  - Cognitive disorder [None]
  - Migraine [None]

NARRATIVE: CASE EVENT DATE: 20181110
